FAERS Safety Report 9558549 (Version 3)
Quarter: 2013Q4

REPORT INFORMATION
  Report Type: Spontaneous
  Country: JP (occurrence: JP)
  Receive Date: 20130926
  Receipt Date: 20131004
  Transmission Date: 20140711
  Serious: No
  Sender: FDA-Public Use
  Company Number: JP-ABBVIE-13P-087-1150231-00

PATIENT
  Age: 22 Year
  Sex: Female
  Weight: 42 kg

DRUGS (3)
  1. HUMIRA [Suspect]
     Indication: CROHN^S DISEASE
     Route: 058
     Dates: start: 20130731, end: 20130731
  2. HUMIRA [Suspect]
     Dates: start: 20130814, end: 20130814
  3. HUMIRA [Suspect]
     Dates: start: 20130828, end: 20130911

REACTIONS (1)
  - Myalgia [Recovered/Resolved]
